FAERS Safety Report 19448199 (Version 2)
Quarter: 2021Q2

REPORT INFORMATION
  Report Type: Report from Study
  Country: US (occurrence: US)
  Receive Date: 20210622
  Receipt Date: 20210623
  Transmission Date: 20210717
  Serious: Yes (Other)
  Sender: FDA-Public Use
  Company Number: US-ASTELLAS-2021US022390

PATIENT
  Sex: Female

DRUGS (2)
  1. MIRABEGRON [Suspect]
     Active Substance: MIRABEGRON
     Route: 048
  2. MIRABEGRON [Suspect]
     Active Substance: MIRABEGRON
     Indication: HYPERTONIC BLADDER
     Route: 065

REACTIONS (8)
  - Dry eye [Unknown]
  - Condition aggravated [Unknown]
  - Eye inflammation [Unknown]
  - Dry skin [Unknown]
  - Frustration tolerance decreased [Unknown]
  - Eye swelling [Unknown]
  - Dry mouth [Unknown]
  - Ocular hyperaemia [Unknown]
